FAERS Safety Report 19928838 (Version 1)
Quarter: 2021Q4

REPORT INFORMATION
  Report Type: Spontaneous
  Country: TR (occurrence: TR)
  Receive Date: 20211007
  Receipt Date: 20211007
  Transmission Date: 20220303
  Serious: Yes (Hospitalization)
  Sender: FDA-Public Use
  Company Number: TR-PERRIGO-21TR028657

PATIENT
  Age: 3 Year

DRUGS (1)
  1. MIDAZOLAM HYDROCHLORIDE [Suspect]
     Active Substance: MIDAZOLAM HYDROCHLORIDE
     Indication: Anaesthesia
     Dosage: UNK

REACTIONS (2)
  - Anaphylactic reaction [Unknown]
  - Cardio-respiratory arrest [Unknown]
